FAERS Safety Report 19027116 (Version 1)
Quarter: 2021Q1

REPORT INFORMATION
  Report Type: Report from Study
  Country: TW (occurrence: TW)
  Receive Date: 20210318
  Receipt Date: 20210318
  Transmission Date: 20210420
  Serious: Yes (Hospitalization, Other)
  Sender: FDA-Public Use
  Company Number: TW-BRISTOL-MYERS SQUIBB COMPANY-BMS-2020-110047

PATIENT
  Age: 69 Year
  Sex: Female
  Weight: 34.5 kg

DRUGS (4)
  1. PREDNISOLONE. [Concomitant]
     Active Substance: PREDNISOLONE
     Indication: PRODUCT USED FOR UNKNOWN INDICATION
     Dosage: 5 MILLIGRAM, QD
     Route: 048
  2. ABATACEPT [Suspect]
     Active Substance: ABATACEPT
     Dosage: 500 MILLIGRAM, QMO
     Route: 042
     Dates: start: 20201209
  3. CELEBREX [Concomitant]
     Active Substance: CELECOXIB
     Indication: PRODUCT USED FOR UNKNOWN INDICATION
     Dosage: 200 MILLIGRAM, BID
     Route: 048
  4. ABATACEPT [Suspect]
     Active Substance: ABATACEPT
     Indication: RHEUMATOID ARTHRITIS
     Dosage: 500 MILLIGRAM, QMO
     Route: 042
     Dates: start: 20161018

REACTIONS (5)
  - Back pain [Recovering/Resolving]
  - Spinal compression fracture [Recovered/Resolved]
  - Fall [Recovering/Resolving]
  - Spinal stenosis [Unknown]
  - Rib fracture [Recovering/Resolving]

NARRATIVE: CASE EVENT DATE: 20201104
